FAERS Safety Report 24231233 (Version 1)
Quarter: 2024Q3

REPORT INFORMATION
  Report Type: Spontaneous
  Country: GR (occurrence: GR)
  Receive Date: 20240821
  Receipt Date: 20240821
  Transmission Date: 20241017
  Serious: Yes (Other)
  Sender: RANBAXY
  Company Number: GR-SUN PHARMACEUTICAL INDUSTRIES LTD-2024R1-463704

PATIENT
  Age: 69 Year
  Sex: Male

DRUGS (8)
  1. CIPROFLOXACIN [Suspect]
     Active Substance: CIPROFLOXACIN
     Indication: Pyrexia
     Dosage: UNK
     Route: 065
  2. CIPROFLOXACIN [Suspect]
     Active Substance: CIPROFLOXACIN
     Indication: Chills
  3. CIPROFLOXACIN [Suspect]
     Active Substance: CIPROFLOXACIN
     Indication: Diarrhoea
  4. CIPROFLOXACIN [Suspect]
     Active Substance: CIPROFLOXACIN
     Indication: Vomiting
  5. MEROPENEM [Suspect]
     Active Substance: MEROPENEM
     Indication: Pyrexia
     Dosage: UNK
     Route: 065
  6. MEROPENEM [Suspect]
     Active Substance: MEROPENEM
     Indication: Chills
  7. MEROPENEM [Suspect]
     Active Substance: MEROPENEM
     Indication: Diarrhoea
  8. MEROPENEM [Suspect]
     Active Substance: MEROPENEM
     Indication: Vomiting

REACTIONS (1)
  - Disease recurrence [Unknown]
